FAERS Safety Report 7932328-2 (Version None)
Quarter: 2011Q4

REPORT INFORMATION
  Report Type: 
  Country: None (occurrence: None)
  Receive Date: 20111121
  Receipt Date: 20111111
  Transmission Date: 20120403
  Serious: Yes (Hospitalization)
  Sender: FDA-Public Use
  Company Number: JP-MERCK-1110USA04565

PATIENT
  Age: 67 Year
  Sex: Male

DRUGS (8)
  1. DIFLUCAN [Concomitant]
     Indication: ORAL CANDIDIASIS
     Route: 048
     Dates: start: 20100519, end: 20100529
  2. EPZICOM [Suspect]
     Indication: HIV INFECTION
     Route: 048
     Dates: start: 20100519, end: 20100529
  3. ZITHROMAX [Concomitant]
     Indication: ATYPICAL MYCOBACTERIAL INFECTION
     Route: 048
     Dates: start: 20100519, end: 20100529
  4. ISENTRESS [Suspect]
     Indication: HIV INFECTION
     Route: 048
     Dates: start: 20100519, end: 20100529
  5. AMLODIN OD [Concomitant]
     Indication: HYPERTENSION
     Route: 048
     Dates: start: 20100519, end: 20100529
  6. IRBESARTAN [Concomitant]
     Indication: HYPERTENSION
     Route: 048
     Dates: start: 20100519, end: 20100529
  7. FAMOTIDINE [Concomitant]
     Indication: GASTRITIS
     Route: 048
     Dates: start: 20100519, end: 20100529
  8. PLETAL [Concomitant]
     Indication: CAROTID ARTERY STENOSIS
     Route: 048
     Dates: start: 20100519, end: 20100529

REACTIONS (2)
  - DECREASED APPETITE [None]
  - PYREXIA [None]
